FAERS Safety Report 8606972-3 (Version None)
Quarter: 2012Q3

REPORT INFORMATION
  Report Type: 
  Country: None (occurrence: None)
  Receive Date: 20120820
  Receipt Date: 20120813
  Transmission Date: 20120928
  Serious: No
  Sender: FDA-Public Use
  Company Number: US-PFIZER INC-2012194234

PATIENT
  Age: 73 Year
  Sex: Male

DRUGS (1)
  1. SUTENT [Suspect]
     Indication: RENAL CELL CARCINOMA
     Dosage: UNK
     Dates: start: 20090101

REACTIONS (3)
  - LIVER FUNCTION TEST ABNORMAL [None]
  - GASTROINTESTINAL TOXICITY [None]
  - ABDOMINAL DISCOMFORT [None]
